FAERS Safety Report 4915182-2 (Version None)
Quarter: 2006Q1

REPORT INFORMATION
  Report Type: 
  Country: None (occurrence: None)
  Receive Date: 20060215
  Receipt Date: 20060215
  Transmission Date: 20060701
  Serious: Yes (Hospitalization, Other)
  Sender: FDA-Public Use
  Company Number: None

PATIENT
  Sex: Male
  Weight: 73.8 kg

DRUGS (4)
  1. CYCLOPHOSPHAMIDE [Suspect]
     Indication: ACUTE LYMPHOCYTIC LEUKAEMIA
     Dosage: 3705 MG
  2. CYTARABINE [Suspect]
     Dosage: 2275 MG
  3. MERCAPTOPURINE [Suspect]
     Dosage: 2800 MG
  4. METHOTREXATE [Suspect]
     Dosage: 50 MG

REACTIONS (1)
  - FEBRILE NEUTROPENIA [None]
